FAERS Safety Report 9391987 (Version 1)
Quarter: 2013Q3

REPORT INFORMATION
  Report Type: Spontaneous
  Country: US (occurrence: US)
  Receive Date: 20130709
  Receipt Date: 20130709
  Transmission Date: 20140515
  Serious: No
  Sender: FDA-Public Use
  Company Number: US-VERTEX PHARMACEUTICALS INC-2013-007751

PATIENT
  Sex: Female

DRUGS (4)
  1. INCIVEK [Suspect]
     Indication: HEPATITIS C
     Dosage: 750 MG, TID
     Route: 048
     Dates: start: 201304
  2. RIBAVIRIN [Suspect]
     Indication: HEPATITIS C
     Dosage: 600 MG AM / 400 MG PM
     Dates: start: 201304
  3. RIBAVIRIN [Suspect]
     Dosage: 600 MG, QD
     Dates: start: 2013
  4. PEGASYS [Suspect]
     Indication: HEPATITIS C
     Dosage: UNK
     Dates: start: 201304

REACTIONS (3)
  - Drug dose omission [Recovered/Resolved]
  - Lip blister [Not Recovered/Not Resolved]
  - Red blood cell count decreased [Recovered/Resolved]
